FAERS Safety Report 8318786-2 (Version None)
Quarter: 2012Q2

REPORT INFORMATION
  Report Type: 
  Country: None (occurrence: None)
  Receive Date: 20120426
  Receipt Date: 20120426
  Transmission Date: 20120825
  Serious: No
  Sender: FDA-Public Use
  Company Number: None

PATIENT
  Sex: Male
  Weight: 76 kg

DRUGS (1)
  1. ZELBORAF [Suspect]
     Indication: MALIGNANT MELANOMA
     Dosage: 240 MG BID PO
     Route: 048
     Dates: start: 20120101, end: 20120301

REACTIONS (2)
  - EJECTION FRACTION DECREASED [None]
  - CARDIAC DISORDER [None]
